FAERS Safety Report 5672501-X (Version None)
Quarter: 2008Q1

REPORT INFORMATION
  Report Type: 
  Country: None (occurrence: None)
  Receive Date: 20080318
  Receipt Date: 20080318
  Transmission Date: 20080703
  Serious: Yes (Hospitalization)
  Sender: FDA-Public Use
  Company Number: None

PATIENT
  Sex: Female
  Weight: 92 kg

DRUGS (16)
  1. TEMOZOLOMIDE [Suspect]
     Indication: METASTASIS
     Dosage: 28 MG X 5 MG 24 HR INFUSION IV
     Route: 042
     Dates: start: 20080310, end: 20080314
  2. TEMOZOLOMIDE [Suspect]
     Indication: SARCOMA
     Dosage: 28 MG X 5 MG 24 HR INFUSION IV
     Route: 042
     Dates: start: 20080310, end: 20080314
  3. METHOXYAMINE [Suspect]
     Dosage: 190 MG QD X5 DAYS DAILY X5 DAYS ORAL
     Route: 048
     Dates: start: 20080310, end: 20080315
  4. PAXIL [Concomitant]
  5. VYTORIN [Concomitant]
  6. TRICOR [Concomitant]
  7. COLACE [Concomitant]
  8. MAGOXIDE [Concomitant]
  9. OXYCODONE HCL [Concomitant]
  10. BACTRIM [Concomitant]
  11. METOPROLOL TARTRATE [Concomitant]
  12. ZOSYN [Concomitant]
  13. FUROSEMIDE [Concomitant]
  14. DIGOXIN [Concomitant]
  15. GLARGINE INSULIN [Concomitant]
  16. LACTULOSE [Concomitant]

REACTIONS (5)
  - ATRIAL FIBRILLATION [None]
  - ATRIAL FLUTTER [None]
  - LUNG CANCER METASTATIC [None]
  - MALIGNANT NEOPLASM PROGRESSION [None]
  - PLEURAL EFFUSION [None]
